FAERS Safety Report 8089232-1 (Version None)
Quarter: 2012Q1

REPORT INFORMATION
  Report Type: 
  Country: None (occurrence: None)
  Receive Date: 20120128
  Receipt Date: 20110627
  Transmission Date: 20120608
  Serious: No
  Sender: FDA-Public Use
  Company Number: US-ABBOTT-11P-163-0834744-00

PATIENT
  Sex: Male
  Weight: 99.88 kg

DRUGS (3)
  1. TETRACYCLINE [Suspect]
     Indication: ROSACEA
     Route: 048
     Dates: start: 20110501
  2. ASPIRIN [Concomitant]
     Indication: PROPHYLAXIS
     Route: 048
     Dates: start: 20090101
  3. HUMIRA [Suspect]
     Indication: PSORIASIS
     Route: 058
     Dates: start: 20110501

REACTIONS (1)
  - FLUSHING [None]
